FAERS Safety Report 8485119 (Version 2)
Quarter: 2012Q4

REPORT INFORMATION
  Report Type: Report from Study
  Country: US (occurrence: US)
  Receive Date: 20120330
  Receipt Date: 20121207
  Transmission Date: 20130627
  Serious: Yes (Hospitalization, Other)
  Sender: FDA-Public Use
  Company Number: US-ABBOTT-12P-163-0918561-00

PATIENT
  Age: 52 Year
  Sex: Female
  Weight: 69.01 kg

DRUGS (16)
  1. HUMIRA 40 MG/0.8 ML PEN [Suspect]
     Indication: CROHN^S DISEASE
     Dosage: One dose only
     Dates: start: 20101213, end: 20101213
  2. 6-MP [Concomitant]
     Indication: PRODUCT USED FOR UNKNOWN INDICATION
     Dosage: 2 tabs daily
  3. VALIUM [Concomitant]
     Indication: IRRITABLE BOWEL SYNDROME
  4. VALIUM [Concomitant]
     Indication: ANXIOLYTIC THERAPY
  5. AMITRIPTYLINE [Concomitant]
     Indication: PRODUCT USED FOR UNKNOWN INDICATION
  6. IMODIUM [Concomitant]
     Indication: DIARRHOEA
  7. DICYCLOMINE [Concomitant]
     Indication: MUSCLE SPASMS
  8. DICYCLOMINE [Concomitant]
     Indication: MUSCLE SPASMS
  9. EVENING PRIMROSE OIL [Concomitant]
     Indication: HOT FLUSH
     Dosage: Daily
  10. KLOR-CON [Concomitant]
     Indication: BLOOD POTASSIUM DECREASED
     Dosage: Daily dose: 2 tabs
  11. CLARITIN [Concomitant]
     Indication: HYPERSENSITIVITY
     Dosage: Daily dose: 5mg
  12. ONDANESTERON [Concomitant]
     Indication: NAUSEA
  13. IBUPROFEN [Concomitant]
     Indication: PAIN
  14. DIPHENOXYLATE/ATROPINE [Concomitant]
     Indication: DIARRHOEA
  15. ZOLPIDEM [Concomitant]
     Indication: INSOMNIA
     Dosage: at HS
  16. FOLIC ACID [Concomitant]
     Indication: PRODUCT USED FOR UNKNOWN INDICATION
     Dosage: Daily

REACTIONS (8)
  - Fistula [Not Recovered/Not Resolved]
  - Intestinal obstruction [Not Recovered/Not Resolved]
  - Hypertension [Unknown]
  - Crohn^s disease [Not Recovered/Not Resolved]
  - Post gastric surgery syndrome [Not Recovered/Not Resolved]
  - Abdominal pain [Not Recovered/Not Resolved]
  - Flatulence [Not Recovered/Not Resolved]
  - Weight decreased [Recovering/Resolving]
